FAERS Safety Report 9603771 (Version 10)
Quarter: 2015Q4

REPORT INFORMATION
  Report Type: Report from Study
  Country: DE (occurrence: DE)
  Receive Date: 20131007
  Receipt Date: 20151210
  Transmission Date: 20160305
  Serious: Yes (Death, Hospitalization, Other)
  Sender: FDA-Public Use
  Company Number: DE-BRISTOL-MYERS SQUIBB COMPANY-19507979

PATIENT
  Age: 70 Year
  Sex: Male
  Weight: 61 kg

DRUGS (2)
  1. TAVANIC [Concomitant]
     Active Substance: LEVOFLOXACIN
     Indication: PRODUCT USED FOR UNKNOWN INDICATION
     Route: 065
  2. CETUXIMAB [Suspect]
     Active Substance: CETUXIMAB
     Indication: SQUAMOUS CELL CARCINOMA OF HEAD AND NECK
     Dosage: 18SE13:18SEP13:400 MG/M2  25SEP13:25SEP13:250 MG/M2:7D
     Route: 042
     Dates: start: 20130918, end: 20130925

REACTIONS (8)
  - Diarrhoea [Fatal]
  - Ileus [Fatal]
  - C-reactive protein increased [Not Recovered/Not Resolved]
  - Sepsis [Fatal]
  - General physical health deterioration [Fatal]
  - Epilepsy [Recovered/Resolved]
  - Circulatory collapse [Fatal]
  - Hypotension [Recovered/Resolved]

NARRATIVE: CASE EVENT DATE: 20130920
